FAERS Safety Report 19879104 (Version 1)
Quarter: 2021Q3

REPORT INFORMATION
  Report Type: Spontaneous
  Country: DE (occurrence: DE)
  Receive Date: 20210924
  Receipt Date: 20210924
  Transmission Date: 20211014
  Serious: Yes (Other)
  Sender: FDA-Public Use
  Company Number: DE-AUROBINDO-AUR-APL-2021-039524

PATIENT
  Sex: Male

DRUGS (2)
  1. CLOPIDOGREL [Suspect]
     Active Substance: CLOPIDOGREL BISULFATE
     Indication: ANTIPLATELET THERAPY
     Dosage: UNK
     Route: 065
     Dates: start: 201708
  2. ACETYLSALICYLIC ACID [Suspect]
     Active Substance: ASPIRIN
     Indication: ANTIPLATELET THERAPY
     Dosage: UNK
     Route: 065
     Dates: start: 201708

REACTIONS (13)
  - Angina pectoris [Unknown]
  - Platelet count increased [Not Recovered/Not Resolved]
  - Alanine aminotransferase increased [Unknown]
  - Haemorrhagic diathesis [Unknown]
  - Myeloproliferative neoplasm [Unknown]
  - Coronary artery stenosis [Unknown]
  - Hypertension [Unknown]
  - Janus kinase 2 mutation [Unknown]
  - Splenomegaly [Not Recovered/Not Resolved]
  - Myelofibrosis [Unknown]
  - Von Willebrand^s disease [Unknown]
  - Gamma-glutamyltransferase increased [Unknown]
  - Lymphocyte count decreased [Unknown]

NARRATIVE: CASE EVENT DATE: 201801
